FAERS Safety Report 14325153 (Version 1)
Quarter: 2017Q4

REPORT INFORMATION
  Report Type: Spontaneous
  Country: US (occurrence: US)
  Receive Date: 20171224
  Receipt Date: 20171224
  Transmission Date: 20180321
  Serious: Yes (Other)
  Sender: FDA-Public Use
  Company Number: None

PATIENT
  Age: 57 Year
  Sex: Female
  Weight: 68.85 kg

DRUGS (4)
  1. CEVIMELINE. [Suspect]
     Active Substance: CEVIMELINE
     Indication: DRY MOUTH
     Route: 048
     Dates: start: 20171210, end: 20171210
  2. MULTIVITAMIN [Concomitant]
     Active Substance: VITAMINS
  3. ASPIRIN. [Concomitant]
     Active Substance: ASPIRIN
  4. XIIDRA [Concomitant]
     Active Substance: LIFITEGRAST

REACTIONS (3)
  - Hallucinations, mixed [None]
  - Chills [None]
  - Hyperhidrosis [None]

NARRATIVE: CASE EVENT DATE: 20171210
